FAERS Safety Report 24741229 (Version 1)
Quarter: 2024Q4

REPORT INFORMATION
  Report Type: Spontaneous
  Country: US (occurrence: US)
  Receive Date: 20241217
  Receipt Date: 20241217
  Transmission Date: 20250114
  Serious: Yes (Other)
  Sender: STRIDES
  Company Number: US-STRIDES ARCOLAB LIMITED-2023SP017858

PATIENT
  Age: 61 Year
  Sex: Female

DRUGS (3)
  1. MORPHINE SULFATE [Suspect]
     Active Substance: MORPHINE SULFATE
     Indication: Chest pain
     Dosage: UNK
     Route: 065
  2. THYROTROPIN ALFA [Concomitant]
     Active Substance: THYROTROPIN ALFA
     Indication: Radioactive iodine therapy
     Dosage: UNK (PATIENT RECEIVED TWO DOSES)
     Route: 065
  3. THYROTROPIN ALFA [Concomitant]
     Active Substance: THYROTROPIN ALFA
     Indication: Adjuvant therapy

REACTIONS (1)
  - Drug ineffective [Unknown]
